FAERS Safety Report 18277423 (Version 4)
Quarter: 2020Q4

REPORT INFORMATION
  Report Type: Report from Study
  Country: US (occurrence: US)
  Receive Date: 20200917
  Receipt Date: 20201111
  Transmission Date: 20210113
  Serious: Yes (Hospitalization)
  Sender: FDA-Public Use
  Company Number: US-JNJFOC-A-NJ2020-203571

PATIENT
  Age: 43 Year
  Sex: Male
  Weight: 79.45 kg

DRUGS (9)
  1. UPTRAVI [Suspect]
     Active Substance: SELEXIPAG
     Route: 048
  2. ADEMPAS [Suspect]
     Active Substance: RIOCIGUAT
     Dosage: 2.0 MG IN AM, 1.5MG IN PM
     Route: 065
  3. ELIQUIS [Concomitant]
     Active Substance: APIXABAN
  4. OPSUMIT [Suspect]
     Active Substance: MACITENTAN
     Indication: PULMONARY ARTERIAL HYPERTENSION
     Dosage: 10 MG, QD
     Route: 048
  5. ADEMPAS [Suspect]
     Active Substance: RIOCIGUAT
     Dosage: 2.0 MG, TID
     Route: 065
  6. XARELTO [Concomitant]
     Active Substance: RIVAROXABAN
  7. ADEMPAS [Suspect]
     Active Substance: RIOCIGUAT
     Dosage: 2.5 MG, TID
     Route: 065
  8. UPTRAVI [Suspect]
     Active Substance: SELEXIPAG
     Indication: PULMONARY ARTERIAL HYPERTENSION
     Dosage: 1000 MCG, BID
     Route: 048
  9. ADEMPAS [Suspect]
     Active Substance: RIOCIGUAT
     Indication: PRODUCT USED FOR UNKNOWN INDICATION
     Dosage: 1.5 MG, TID
     Route: 065

REACTIONS (11)
  - Dry mouth [Recovering/Resolving]
  - Dyspnoea [Unknown]
  - Dizziness postural [Not Recovered/Not Resolved]
  - Catheterisation cardiac [Unknown]
  - Adverse event [Unknown]
  - Hospitalisation [Unknown]
  - Vomiting [Unknown]
  - Pulmonary thrombosis [Unknown]
  - Coronary angioplasty [Unknown]
  - Dizziness [Not Recovered/Not Resolved]
  - Presyncope [Unknown]
